FAERS Safety Report 14241054 (Version 1)
Quarter: 2017Q4

REPORT INFORMATION
  Report Type: Spontaneous
  Country: US (occurrence: US)
  Receive Date: 20171130
  Receipt Date: 20171130
  Transmission Date: 20180321
  Serious: No
  Sender: FDA-Public Use
  Company Number: US-LEADIANT BIOSCIENCES INC-2017STPI000348

PATIENT
  Age: 54 Year
  Sex: Female

DRUGS (1)
  1. MATULANE [Suspect]
     Active Substance: PROCARBAZINE HYDROCHLORIDE
     Indication: CEREBRAL DISORDER
     Dosage: 100 MG, QD ON DAYS 8-21 EVERY 6 WEEKS
     Route: 048
     Dates: start: 20170210, end: 20170427

REACTIONS (3)
  - Urticaria [Unknown]
  - Abdominal pain [Unknown]
  - Rash [Unknown]

NARRATIVE: CASE EVENT DATE: 201702
